FAERS Safety Report 9321743 (Version 9)
Quarter: 2015Q1

REPORT INFORMATION
  Report Type: Report from Study
  Country: JP (occurrence: JP)
  Receive Date: 20130531
  Receipt Date: 20150204
  Transmission Date: 20150721
  Serious: Yes (Death, Hospitalization)
  Sender: FDA-Public Use
  Company Number: PHHO2011JP09452

PATIENT
  Age: 69 Year
  Sex: Male
  Weight: 54 kg

DRUGS (26)
  1. ALISKIREN [Suspect]
     Active Substance: ALISKIREN
     Indication: CARDIAC FAILURE
     Dosage: UNK
     Route: 048
     Dates: start: 20110302, end: 20120704
  2. MEXITIL [Concomitant]
     Active Substance: MEXILETINE HYDROCHLORIDE
     Indication: ANGINA PECTORIS
     Dosage: 300 MG, UNK
     Route: 048
     Dates: start: 20051004, end: 20130519
  3. WARFARIN POTASSIUM [Concomitant]
     Active Substance: WARFARIN POTASSIUM
     Indication: ATRIAL FLUTTER
     Dosage: 2.5 MG, QD
     Route: 048
     Dates: start: 20120906
  4. AMIODARONE HYDROCHLORIDE. [Concomitant]
     Active Substance: AMIODARONE HYDROCHLORIDE
     Indication: TACHYARRHYTHMIA
     Dosage: 50 MG, UNK
     Route: 048
     Dates: start: 20111020, end: 20130519
  5. SELARA [Concomitant]
     Active Substance: EPLERENONE
     Indication: CARDIAC FAILURE CHRONIC
     Dosage: UNK
     Route: 048
     Dates: start: 20101018, end: 20130519
  6. SALOBEL [Concomitant]
     Active Substance: ALLOPURINOL
     Indication: HYPERURICAEMIA
     Dosage: 50 MG, UNK
     Route: 048
     Dates: start: 20110518, end: 20130519
  7. DIAMOX SEQUELS [Concomitant]
     Active Substance: ACETAZOLAMIDE
     Dosage: 250 MG, UNK
     Route: 048
     Dates: start: 20110526
  8. SENNOSIDE [Concomitant]
     Active Substance: SENNOSIDES
     Indication: CONSTIPATION
     Dosage: 24 MG, UNK
     Route: 048
     Dates: start: 20120905, end: 20130519
  9. MUCOSTA [Concomitant]
     Active Substance: REBAMIPIDE
     Indication: GASTRITIS PROPHYLAXIS
     Dosage: 200 MG, 200MG
     Route: 048
     Dates: start: 20100512, end: 20130519
  10. ENALAPRIL [Suspect]
     Active Substance: ENALAPRIL
     Indication: CARDIAC FAILURE
     Dosage: UNK
     Route: 048
     Dates: start: 20110302, end: 20120704
  11. MOHRUS [Concomitant]
     Active Substance: KETOPROFEN
     Indication: GOUT
     Dosage: 1 DF, UNK
     Route: 062
     Dates: start: 20110518
  12. KALIMATE [Concomitant]
     Active Substance: CALCIUM POLYSTYRENE SULFONATE
     Indication: HYPERKALAEMIA
     Dosage: UNK
     Route: 048
     Dates: start: 20120512
  13. FRANDOL S [Concomitant]
     Indication: ANGINA PECTORIS
     Dosage: 1 DF, UNK
     Route: 062
     Dates: start: 20051004, end: 20130519
  14. WARFARIN POTASSIUM [Concomitant]
     Active Substance: WARFARIN POTASSIUM
     Indication: PROPHYLAXIS
     Dosage: 1.5 MG, QD
     Route: 048
     Dates: start: 20100818, end: 20130519
  15. GASTROM [Concomitant]
     Active Substance: ECABET
     Indication: GASTRITIS PROPHYLAXIS
     Dosage: 3 G, UNK
     Route: 048
     Dates: start: 20111020
  16. LASIX [Concomitant]
     Active Substance: FUROSEMIDE
     Indication: CARDIAC FAILURE CHRONIC
     Dosage: 40MG, 20MG, 20MG, 20MG
     Route: 048
     Dates: start: 20051004, end: 20130519
  17. GASTER [Concomitant]
     Active Substance: FAMOTIDINE
     Indication: GASTRITIS PROPHYLAXIS
     Dosage: UNK
     Route: 048
     Dates: start: 20051004
  18. MAGMITT KENEI [Concomitant]
     Indication: CONSTIPATION
     Dosage: 330 MG, UNK
     Route: 048
     Dates: start: 20110202, end: 20130519
  19. ALISKIREN [Suspect]
     Active Substance: ALISKIREN
     Route: 048
     Dates: start: 20110302, end: 20120704
  20. ALISKIREN [Suspect]
     Active Substance: ALISKIREN
     Route: 048
     Dates: start: 20120710, end: 20130519
  21. ISODINE [Concomitant]
     Active Substance: POVIDONE-IODINE
     Indication: INFECTION PROPHYLAXIS
     Dosage: UNK
     Dates: start: 20121113, end: 20130519
  22. ALISKIREN [Suspect]
     Active Substance: ALISKIREN
     Indication: CARDIAC FAILURE CHRONIC
     Dosage: UNK
     Route: 048
     Dates: start: 20120710, end: 20130519
  23. KAYEXALATE [Concomitant]
     Active Substance: SODIUM POLYSTYRENE SULFONATE
     Indication: HYPERKALAEMIA
     Dosage: 15G, 20G, 30G
     Route: 048
     Dates: start: 20110216, end: 20130519
  24. ENALAPRIL [Suspect]
     Active Substance: ENALAPRIL
     Dosage: UNK
     Route: 048
     Dates: start: 20120710, end: 20130519
  25. ANCARON [Concomitant]
     Active Substance: AMIODARONE HYDROCHLORIDE
     Indication: TACHYARRHYTHMIA
     Dosage: UNK
     Route: 048
     Dates: start: 20051004
  26. URINORM [Concomitant]
     Active Substance: BENZBROMARONE
     Indication: HYPERURICAEMIA
     Dosage: 50MG, 25MG
     Route: 048
     Dates: start: 20110813, end: 20120511

REACTIONS (5)
  - Cataract [Recovering/Resolving]
  - Atrial flutter [Recovered/Resolved]
  - Ventricular fibrillation [Fatal]
  - Large intestine polyp [Recovered/Resolved]
  - Bronchopneumonia [Recovered/Resolved]

NARRATIVE: CASE EVENT DATE: 20110526
